FAERS Safety Report 16926136 (Version 1)
Quarter: 2019Q4

REPORT INFORMATION
  Report Type: Spontaneous
  Country: US (occurrence: US)
  Receive Date: 20191016
  Receipt Date: 20191016
  Transmission Date: 20200122
  Serious: Yes (Hospitalization, Other)
  Sender: FDA-Public Use
  Company Number: US-ALEMBIC PHARMACUETICALS LIMITED-2019SCAL000756

PATIENT

DRUGS (1)
  1. CARBIDOPA AND LEVODOPA [Suspect]
     Active Substance: CARBIDOPA\LEVODOPA
     Indication: PARKINSON^S DISEASE
     Dosage: 25-250MG TAKEN FIVE TIMES DAILY UNTIL HE RAN OUT OF MEDICATION ONE DAY PRIOR

REACTIONS (19)
  - Hyperhidrosis [Unknown]
  - Myoclonus [Unknown]
  - Resting tremor [Unknown]
  - Lactic acidosis [Unknown]
  - Troponin increased [Unknown]
  - Movement disorder [Unknown]
  - Muscle rigidity [Unknown]
  - Blood creatinine increased [Unknown]
  - Mental status changes [Unknown]
  - Thrombocytopenia [Unknown]
  - Condition aggravated [Unknown]
  - Parkinsonism hyperpyrexia syndrome [Unknown]
  - Tachycardia [Unknown]
  - Hypotension [Unknown]
  - Pyrexia [Recovered/Resolved]
  - Hypoxia [Unknown]
  - Hypertension [Unknown]
  - Transaminases increased [Unknown]
  - Psychomotor hyperactivity [Unknown]
